FAERS Safety Report 13136110 (Version 2)
Quarter: 2017Q1

REPORT INFORMATION
  Report Type: Report from Study
  Country: US (occurrence: US)
  Receive Date: 20170121
  Receipt Date: 20170326
  Transmission Date: 20170428
  Serious: No
  Sender: FDA-Public Use
  Company Number: US-AMGEN-USASP2017006995

PATIENT
  Age: 56 Year
  Sex: Female

DRUGS (1)
  1. ENBREL [Suspect]
     Active Substance: ETANERCEPT
     Indication: RHEUMATOID ARTHRITIS
     Dosage: 50 MG, QWK
     Route: 058
     Dates: start: 20160610, end: 201612

REACTIONS (8)
  - Injection site bruising [Unknown]
  - Injection site erythema [Unknown]
  - Treatment failure [Unknown]
  - Injection site pruritus [Unknown]
  - Urinary tract infection [Unknown]
  - Adverse drug reaction [Unknown]
  - Drug ineffective [Unknown]
  - Injection site pain [Unknown]

NARRATIVE: CASE EVENT DATE: 2016
